FAERS Safety Report 13452499 (Version 1)
Quarter: 2017Q2

REPORT INFORMATION
  Report Type: Spontaneous
  Country: US (occurrence: US)
  Receive Date: 20170418
  Receipt Date: 20170418
  Transmission Date: 20170830
  Serious: No
  Sender: FDA-Public Use
  Company Number: US-TEVA-717695ACC

PATIENT
  Sex: Female

DRUGS (1)
  1. WARFARTAB [Suspect]
     Active Substance: WARFARIN SODIUM

REACTIONS (1)
  - Hypersensitivity [Unknown]
